FAERS Safety Report 5728714-1 (Version None)
Quarter: 2008Q2

REPORT INFORMATION
  Report Type: 
  Country: None (occurrence: None)
  Receive Date: 20080506
  Receipt Date: 20080425
  Transmission Date: 20081010
  Serious: Yes (Congenital Anomaly)
  Sender: FDA-Public Use
  Company Number: A0648778A

PATIENT
  Sex: Female
  Weight: 4 kg

DRUGS (3)
  1. PAXIL [Suspect]
     Indication: DRUG USE FOR UNKNOWN INDICATION
     Dosage: 20MG UNKNOWN
     Dates: start: 20020101
  2. DIGOXIN [Concomitant]
  3. TERBUTALINE SULFATE [Concomitant]

REACTIONS (24)
  - ABDOMINAL TRANSPOSITION [None]
  - AORTA HYPOPLASIA [None]
  - AORTIC STENOSIS [None]
  - ASPIRATION [None]
  - ASPLENIA [None]
  - ATELECTASIS [None]
  - ATRIAL SEPTAL DEFECT [None]
  - BRADYCARDIA [None]
  - BUNDLE BRANCH BLOCK RIGHT [None]
  - CARDIAC MURMUR [None]
  - CARDIOMEGALY [None]
  - COARCTATION OF THE AORTA [None]
  - DRUG EXPOSURE DURING PREGNANCY [None]
  - HYPOTENSION [None]
  - INFERIOR VENA CAVAL OCCLUSION [None]
  - INFUSION SITE EXTRAVASATION [None]
  - INTESTINAL MALROTATION [None]
  - PATENT DUCTUS ARTERIOSUS [None]
  - PULMONARY OEDEMA [None]
  - RIGHT VENTRICULAR HYPERTROPHY [None]
  - SINUS BRADYCARDIA [None]
  - SITUS AMBIGUOUS [None]
  - THERMAL BURN [None]
  - VOCAL CORD PARALYSIS [None]
